FAERS Safety Report 4641922-6 (Version None)
Quarter: 2005Q2

REPORT INFORMATION
  Report Type: 
  Country: None (occurrence: None)
  Receive Date: 20050421
  Receipt Date: 20050407
  Transmission Date: 20051028
  Serious: Yes (Other)
  Sender: FDA-Public Use
  Company Number: 2005057370

PATIENT
  Age: 22 Month
  Sex: Female
  Weight: 9.9791 kg

DRUGS (5)
  1. ZYRTEC [Suspect]
     Indication: DERMATITIS ATOPIC
     Dosage: 2 IN 1 D
     Dates: start: 20041213
  2. MONTELUKAST (MONTELUKAST) [Concomitant]
  3. PIMECROLIMUS (PIMECROLIMUS) [Concomitant]
  4. TRIAMCINOLONE [Concomitant]
  5. ALL OTHER THERAPEUTIC PRODUCTS (ALL OTHER THERAPEUTIC PRODUCTS) [Concomitant]

REACTIONS (6)
  - CONDITION AGGRAVATED [None]
  - FEBRILE CONVULSION [None]
  - OTITIS MEDIA [None]
  - PRURITUS [None]
  - SCRATCH [None]
  - SKIN DISORDER [None]
